FAERS Safety Report 5614295-X (Version None)
Quarter: 2008Q1

REPORT INFORMATION
  Report Type: 
  Country: None (occurrence: None)
  Receive Date: 20080205
  Receipt Date: 20080124
  Transmission Date: 20080703
  Serious: Yes (Other)
  Sender: FDA-Public Use
  Company Number: US-PFIZER INC-2008009092

PATIENT
  Sex: Female
  Weight: 61.363 kg

DRUGS (2)
  1. CHANTIX [Suspect]
     Indication: SMOKING CESSATION THERAPY
     Dates: start: 20071201, end: 20080119
  2. AMBIEN [Suspect]
     Indication: SLEEP DISORDER

REACTIONS (10)
  - ANXIETY [None]
  - BIPOLAR DISORDER [None]
  - DISTURBANCE IN ATTENTION [None]
  - DRUG INEFFECTIVE [None]
  - HYPERTENSION [None]
  - INSOMNIA [None]
  - INTENTIONAL DRUG MISUSE [None]
  - NERVOUSNESS [None]
  - PARANOIA [None]
  - PSYCHOMOTOR HYPERACTIVITY [None]
